FAERS Safety Report 14022505 (Version 1)
Quarter: 2017Q3

REPORT INFORMATION
  Report Type: Spontaneous
  Country: GB (occurrence: GB)
  Receive Date: 20170929
  Receipt Date: 20170929
  Transmission Date: 20171128
  Serious: Yes (Life-Threatening, Hospitalization)
  Sender: FDA-Public Use
  Company Number: GB-AUROBINDO-AUR-APL-2017-40984

PATIENT
  Sex: Male

DRUGS (2)
  1. QUETIAPINE. [Suspect]
     Active Substance: QUETIAPINE
     Indication: BIPOLAR DISORDER
     Route: 064
     Dates: start: 20130601
  2. DULOXETINE. [Suspect]
     Active Substance: DULOXETINE
     Indication: BIPOLAR DISORDER
     Route: 064
     Dates: start: 20130504

REACTIONS (4)
  - Pyrexia [Unknown]
  - Speech disorder [Unknown]
  - Oxygen saturation decreased [Unknown]
  - Convulsion neonatal [Recovered/Resolved with Sequelae]

NARRATIVE: CASE EVENT DATE: 20150510
